FAERS Safety Report 14773366 (Version 2)
Quarter: 2018Q2

REPORT INFORMATION
  Report Type: Spontaneous
  Country: BE (occurrence: BE)
  Receive Date: 20180418
  Receipt Date: 20180422
  Transmission Date: 20180711
  Serious: Yes (Hospitalization, Other)
  Sender: FDA-Public Use
  Company Number: BE-APOTEX-2018AP010188

PATIENT
  Age: 66 Year
  Sex: Male

DRUGS (2)
  1. SERTRALINE [Suspect]
     Active Substance: SERTRALINE HYDROCHLORIDE
     Indication: PRODUCT USED FOR UNKNOWN INDICATION
     Dosage: 50 MG, UNK
     Route: 065
  2. METHYLENE BLUE. [Suspect]
     Active Substance: METHYLENE BLUE
     Indication: IMAGING PROCEDURE
     Dosage: 8 MG/KG, UNK
     Route: 042

REACTIONS (3)
  - Drug interaction [Unknown]
  - Toxic encephalopathy [Recovered/Resolved]
  - Serotonin syndrome [Recovered/Resolved]
